FAERS Safety Report 26216307 (Version 1)
Quarter: 2025Q4

REPORT INFORMATION
  Report Type: Spontaneous
  Country: US (occurrence: None)
  Receive Date: 20251231
  Receipt Date: 20251231
  Transmission Date: 20260118
  Serious: Yes (Other)
  Sender: ORGANON
  Company Number: US-MLMSERVICE-20251210-PI744803-00298-1

PATIENT
  Age: 97 Year
  Sex: Male

DRUGS (2)
  1. ZOCOR [Interacting]
     Active Substance: SIMVASTATIN
     Dosage: UNK
  2. FLUCONAZOLE [Interacting]
     Active Substance: FLUCONAZOLE
     Indication: Rash
     Dosage: 200 MILLIGRAM

REACTIONS (2)
  - Rhabdomyolysis [Recovered/Resolved]
  - Potentiating drug interaction [Recovered/Resolved]
